FAERS Safety Report 24545655 (Version 2)
Quarter: 2024Q4

REPORT INFORMATION
  Report Type: Spontaneous
  Country: US (occurrence: US)
  Receive Date: 20241024
  Receipt Date: 20241031
  Transmission Date: 20250115
  Serious: No
  Sender: PFIZER
  Company Number: US-PFIZER INC-202400284684

PATIENT
  Age: 66 Year
  Sex: Female
  Weight: 97.07 kg

DRUGS (4)
  1. PREMARIN [Suspect]
     Active Substance: ESTROGENS, CONJUGATED
     Dosage: UNK
  2. ESTRADIOL [Suspect]
     Active Substance: ESTRADIOL
     Dosage: UNK
  3. ESTROGENS\TESTOSTERONE [Suspect]
     Active Substance: ESTROGENS\TESTOSTERONE
     Dosage: UNK
  4. ESTROGENS [Suspect]
     Active Substance: ESTROGENS
     Dosage: UNK

REACTIONS (1)
  - Drug ineffective [Unknown]
